FAERS Safety Report 7585080-7 (Version None)
Quarter: 2011Q2

REPORT INFORMATION
  Report Type: 
  Country: None (occurrence: None)
  Receive Date: 20110630
  Receipt Date: 20110622
  Transmission Date: 20111010
  Serious: Yes (Other)
  Sender: FDA-Public Use
  Company Number: FR-BRISTOL-MYERS SQUIBB COMPANY-15855562

PATIENT
  Age: 30 Year
  Sex: Female

DRUGS (2)
  1. TRUVADA [Suspect]
  2. REYATAZ [Suspect]

REACTIONS (1)
  - WEIGHT INCREASED [None]
